FAERS Safety Report 5497898-5 (Version None)
Quarter: 2007Q4

REPORT INFORMATION
  Report Type: 
  Country: None (occurrence: None)
  Receive Date: 20071025
  Receipt Date: 20070808
  Transmission Date: 20080405
  Serious: Yes (Hospitalization, Other)
  Sender: FDA-Public Use
  Company Number: US-PFIZER INC-2006119404

PATIENT
  Sex: Female
  Weight: 89.4 kg

DRUGS (6)
  1. CELEBREX [Suspect]
     Indication: ARTHRITIS
     Route: 048
  2. VIOXX [Suspect]
     Indication: ARTHRITIS
     Route: 048
     Dates: start: 19990601
  3. IBUPROFEN [Concomitant]
     Dates: start: 20050104, end: 20050404
  4. AVAPRO [Concomitant]
     Indication: HYPERTENSION
     Dates: start: 20041228, end: 20051202
  5. COREG [Concomitant]
     Indication: HYPERTENSION
     Dates: start: 20050307, end: 20050607
  6. ACETYLSALICYLIC ACID SRT [Concomitant]
     Dates: start: 20031219, end: 20060101

REACTIONS (4)
  - CARDIOVASCULAR DISORDER [None]
  - CEREBROVASCULAR ACCIDENT [None]
  - MYOCARDIAL INFARCTION [None]
  - TRANSIENT ISCHAEMIC ATTACK [None]
